FAERS Safety Report 25805316 (Version 1)
Quarter: 2025Q3

REPORT INFORMATION
  Report Type: Spontaneous
  Country: US (occurrence: US)
  Receive Date: 20250916
  Receipt Date: 20250916
  Transmission Date: 20251020
  Serious: Yes (Other)
  Sender: DAIICHI
  Company Number: US-DSJP-DS-2025-164446-US

PATIENT
  Sex: Female

DRUGS (2)
  1. VANFLYTA [Suspect]
     Active Substance: QUIZARTINIB DIHYDROCHLORIDE
     Indication: Leukaemia
     Route: 065
  2. VANFLYTA [Suspect]
     Active Substance: QUIZARTINIB DIHYDROCHLORIDE
     Route: 065

REACTIONS (3)
  - Pancytopenia [Unknown]
  - Blood creatine phosphokinase increased [Unknown]
  - Arthralgia [Unknown]
